FAERS Safety Report 19373209 (Version 2)
Quarter: 2021Q3

REPORT INFORMATION
  Report Type: Report from Study
  Country: US (occurrence: US)
  Receive Date: 20210604
  Receipt Date: 20210701
  Transmission Date: 20211014
  Serious: Yes (Life-Threatening, Other)
  Sender: FDA-Public Use
  Company Number: US-BAYER-2021-149367

PATIENT
  Age: 68 Year
  Sex: Male

DRUGS (1)
  1. ASPIRIN. [Suspect]
     Active Substance: ASPIRIN

REACTIONS (7)
  - Blood chloride abnormal [Recovered/Resolved]
  - Anion gap abnormal [Recovered/Resolved]
  - Toxicity to various agents [Recovered/Resolved]
  - Mental status changes [Recovered/Resolved]
  - Respiratory alkalosis [Recovered/Resolved]
  - Suicide attempt [None]
  - Metabolic acidosis [Recovered/Resolved]
